FAERS Safety Report 14919461 (Version 1)
Quarter: 2018Q2

REPORT INFORMATION
  Report Type: Spontaneous
  Country: US (occurrence: US)
  Receive Date: 20180521
  Receipt Date: 20180521
  Transmission Date: 20180711
  Serious: No
  Sender: FDA-Public Use
  Company Number: US-LEO PHARMA-309013

PATIENT
  Age: 62 Year
  Sex: Female

DRUGS (1)
  1. PICATO [Suspect]
     Active Substance: INGENOL MEBUTATE
     Indication: ACTINIC KERATOSIS
     Route: 061
     Dates: start: 20180514

REACTIONS (4)
  - Application site vesicles [Unknown]
  - Application site exfoliation [Unknown]
  - Incorrect drug administration duration [Unknown]
  - Application site erosion [Not Recovered/Not Resolved]
